FAERS Safety Report 7947109-3 (Version None)
Quarter: 2011Q4

REPORT INFORMATION
  Report Type: 
  Country: None (occurrence: None)
  Receive Date: 20111129
  Receipt Date: 20111116
  Transmission Date: 20120403
  Serious: Yes (Hospitalization, Other)
  Sender: FDA-Public Use
  Company Number: FR-ROCHE-1014128

PATIENT
  Sex: Male

DRUGS (2)
  1. VEMURAFENIB [Suspect]
     Dosage: 4 TABLETS TWICE
     Dates: start: 20111017
  2. VEMURAFENIB [Suspect]
     Indication: PRODUCT USED FOR UNKNOWN INDICATION
     Dates: start: 20110819

REACTIONS (4)
  - DIARRHOEA [None]
  - ASTHENIA [None]
  - DISEASE PROGRESSION [None]
  - VOMITING [None]
